FAERS Safety Report 7724508-6 (Version None)
Quarter: 2011Q3

REPORT INFORMATION
  Report Type: 
  Country: None (occurrence: None)
  Receive Date: 20110901
  Receipt Date: 20110720
  Transmission Date: 20111222
  Serious: Yes (Hospitalization)
  Sender: FDA-Public Use
  Company Number: JP-GLAXOSMITHKLINE-B0734400A

PATIENT
  Sex: Male

DRUGS (6)
  1. FAMOTIDINE [Concomitant]
     Indication: GASTROOESOPHAGEAL REFLUX DISEASE
     Dosage: 20MG PER DAY
     Route: 048
     Dates: end: 20110720
  2. LAMICTAL [Suspect]
     Indication: EPILEPSY
     Dosage: 100MG PER DAY
     Route: 048
     Dates: start: 20110630, end: 20110720
  3. TOPIRAMATE [Concomitant]
     Indication: EPILEPSY
     Dosage: 200MG PER DAY
     Route: 048
     Dates: start: 20110301, end: 20110720
  4. TEGRETOL [Concomitant]
     Indication: EPILEPSY
     Dosage: 600MG PER DAY
     Route: 048
     Dates: start: 20100901, end: 20110720
  5. LEVOFLOXACIN [Concomitant]
     Indication: INFECTION
     Route: 065
     Dates: end: 20110720
  6. DECADRON [Concomitant]
     Indication: BRAIN OEDEMA
     Route: 048
     Dates: start: 20110201

REACTIONS (9)
  - RASH [None]
  - PYREXIA [None]
  - C-REACTIVE PROTEIN INCREASED [None]
  - GENITAL EROSION [None]
  - TOXIC EPIDERMAL NECROLYSIS [None]
  - BLISTER [None]
  - RASH ERYTHEMATOUS [None]
  - EOSINOPHIL PERCENTAGE INCREASED [None]
  - STEVENS-JOHNSON SYNDROME [None]
